FAERS Safety Report 9904878 (Version 3)
Quarter: 2014Q4

REPORT INFORMATION
  Report Type: Spontaneous
  Country: US (occurrence: US)
  Receive Date: 20140218
  Receipt Date: 20141209
  Transmission Date: 20150529
  Serious: Yes (Hospitalization, Other)
  Sender: FDA-Public Use
  Company Number: US-BAYER-2014-024827

PATIENT
  Age: 40 Year
  Sex: Female
  Weight: 69 kg

DRUGS (1)
  1. MIRENA [Suspect]
     Active Substance: LEVONORGESTREL
     Indication: CONTRACEPTION
     Dosage: 20 MCG/24HR, CONT
     Route: 015
     Dates: start: 20071114, end: 20101101

REACTIONS (13)
  - Embedded device [None]
  - Pain [None]
  - Procedural pain [None]
  - Depression [None]
  - Scar [None]
  - Device issue [None]
  - Anxiety [None]
  - Medical device discomfort [None]
  - Injury [None]
  - Device dislocation [None]
  - Device failure [None]
  - Medical device pain [None]
  - Emotional distress [None]

NARRATIVE: CASE EVENT DATE: 20101101
